FAERS Safety Report 10047291 (Version 2)
Quarter: 2014Q1

REPORT INFORMATION
  Report Type: Spontaneous
  Country: US (occurrence: US)
  Receive Date: 20140331
  Receipt Date: 20140331
  Transmission Date: 20141002
  Serious: No
  Sender: FDA-Public Use
  Company Number: US-MYLANLABS-2013S1028119

PATIENT
  Age: 66 Year
  Sex: Female
  Weight: 122.47 kg

DRUGS (7)
  1. FENTANYL TRANSDERMAL SYSTEM [Suspect]
     Indication: PAIN
     Dosage: Q72HR
     Route: 062
     Dates: start: 201311
  2. IBUPROFEN [Concomitant]
     Indication: PAIN
  3. HYDROMORPHONE [Concomitant]
     Indication: PAIN
  4. ASA [Concomitant]
  5. LAXATIVE [Concomitant]
     Indication: CONSTIPATION
  6. OMEPRAZOLE [Concomitant]
     Indication: FLATULENCE
  7. WARFARIN [Concomitant]
     Indication: PULMONARY EMBOLISM

REACTIONS (3)
  - Restlessness [Recovered/Resolved]
  - Insomnia [Recovered/Resolved]
  - Incorrect drug administration duration [Recovered/Resolved]
